FAERS Safety Report 7783486-4 (Version None)
Quarter: 2011Q3

REPORT INFORMATION
  Report Type: 
  Country: None (occurrence: None)
  Receive Date: 20110928
  Receipt Date: 20110920
  Transmission Date: 20111222
  Serious: Yes (Other)
  Sender: FDA-Public Use
  Company Number: US-NOVOPROD-335481

PATIENT
  Sex: Male

DRUGS (2)
  1. VICTOZA [Suspect]
     Dosage: UNK
     Dates: end: 20110801
  2. VICTOZA [Suspect]
     Indication: GLUCOSE TOLERANCE IMPAIRED
     Dosage: 0.6 MG, QD
     Route: 058
     Dates: start: 20110623, end: 20110801

REACTIONS (1)
  - PANCREATITIS ACUTE [None]
